FAERS Safety Report 6895488-0 (Version None)
Quarter: 2010Q3

REPORT INFORMATION
  Report Type: 
  Country: None (occurrence: None)
  Receive Date: 20100802
  Receipt Date: 20100723
  Transmission Date: 20110219
  Serious: Yes (Hospitalization)
  Sender: FDA-Public Use
  Company Number: PHHO2010DE11197

PATIENT
  Sex: Female
  Weight: 61 kg

DRUGS (4)
  1. ZOLEDRONATE T29581+SOLINJ+BM [Suspect]
     Indication: BREAST CANCER
     Dosage: 4MG
     Route: 042
     Dates: start: 20100112
  2. ARIMIDEX [Suspect]
     Indication: BREAST CANCER
     Dosage: 1MG
     Route: 048
  3. CALCIUM [Concomitant]
  4. VITAMIN D [Concomitant]

REACTIONS (2)
  - OSTEONECROSIS OF JAW [None]
  - SURGERY [None]
